FAERS Safety Report 7756572-2 (Version None)
Quarter: 2011Q3

REPORT INFORMATION
  Report Type: 
  Country: None (occurrence: None)
  Receive Date: 20110916
  Receipt Date: 20110908
  Transmission Date: 20111222
  Serious: Yes (Hospitalization)
  Sender: FDA-Public Use
  Company Number: DE-JNJFOC-20100301112

PATIENT
  Age: 43 Year
  Sex: Male
  Weight: 85 kg

DRUGS (1)
  1. REMICADE [Suspect]
     Indication: COLITIS ULCERATIVE
     Route: 042
     Dates: start: 20090218, end: 20090317

REACTIONS (8)
  - COLITIS [None]
  - INTESTINAL ANASTOMOSIS [None]
  - INFECTIOUS PERITONITIS [None]
  - ANASTOMOTIC COMPLICATION [None]
  - ENTEROCOCCAL INFECTION [None]
  - IMPAIRED HEALING [None]
  - WOUND INFECTION [None]
  - ESCHERICHIA INFECTION [None]
